FAERS Safety Report 6034582-3 (Version None)
Quarter: 2009Q1

REPORT INFORMATION
  Report Type: 
  Country: None (occurrence: None)
  Receive Date: 20090112
  Receipt Date: 20090108
  Transmission Date: 20090719
  Serious: Yes (Hospitalization, Disabling, Other)
  Sender: FDA-Public Use
  Company Number: US-MERCK-0810USA04946

PATIENT
  Age: 61 Year
  Sex: Female
  Weight: 60 kg

DRUGS (4)
  1. JANUVIA [Suspect]
     Indication: TYPE 2 DIABETES MELLITUS
     Route: 048
     Dates: end: 20080701
  2. GLIPIZIDE [Concomitant]
     Route: 048
     Dates: start: 20060612, end: 20080912
  3. METFORMIN [Concomitant]
     Route: 048
     Dates: start: 20070816, end: 20080912
  4. LIPITOR [Concomitant]
     Route: 048
     Dates: start: 20080908, end: 20080912

REACTIONS (3)
  - ABDOMINAL PAIN [None]
  - NAUSEA [None]
  - VOMITING [None]
